FAERS Safety Report 9458740 (Version 1)
Quarter: 2013Q3

REPORT INFORMATION
  Report Type: Spontaneous
  Country: DE (occurrence: DE)
  Receive Date: 20130814
  Receipt Date: 20130814
  Transmission Date: 20140515
  Serious: Yes (Life-Threatening, Other)
  Sender: FDA-Public Use
  Company Number: DE-ROXANE LABORATORIES, INC.-2013-RO-01329RO

PATIENT
  Age: 60 Year
  Sex: Male

DRUGS (5)
  1. RAMIPRIL [Suspect]
     Indication: HYPERTENSION
  2. CEFUROXIME [Suspect]
     Dosage: 1500 MG
     Route: 042
  3. ETOMIDATE [Concomitant]
     Indication: ANAESTHESIA
     Dosage: 20 MG
  4. SUFENTANIL [Concomitant]
     Indication: ANAESTHESIA
  5. ATRACURIUM [Concomitant]
     Indication: ANAESTHESIA
     Dosage: 50 MG

REACTIONS (6)
  - Anaphylactic shock [Recovered/Resolved]
  - Capillary leak syndrome [Recovered/Resolved]
  - Fibrinolysis increased [Recovered/Resolved]
  - Disseminated intravascular coagulation [Unknown]
  - Multi-organ failure [Recovered/Resolved]
  - Lactic acidosis [Recovered/Resolved]
